FAERS Safety Report 9010705 (Version 2)
Quarter: 2013Q1

REPORT INFORMATION
  Report Type: Spontaneous
  Country: US (occurrence: US)
  Receive Date: 20130109
  Receipt Date: 20130111
  Transmission Date: 20140127
  Serious: No
  Sender: FDA-Public Use
  Company Number: US-TEVA-379052USA

PATIENT
  Sex: Female
  Weight: 56.75 kg

DRUGS (3)
  1. FENTORA [Suspect]
     Indication: CANCER PAIN
     Route: 002
  2. VICODIN [Concomitant]
     Indication: TEMPOROMANDIBULAR JOINT SYNDROME
  3. VICODIN [Concomitant]
     Indication: CANCER PAIN

REACTIONS (3)
  - Pain [Not Recovered/Not Resolved]
  - Drug ineffective [Not Recovered/Not Resolved]
  - Urinary tract infection [Not Recovered/Not Resolved]
